FAERS Safety Report 16208201 (Version 1)
Quarter: 2019Q2

REPORT INFORMATION
  Report Type: Spontaneous
  Country: US (occurrence: US)
  Receive Date: 20190417
  Receipt Date: 20190417
  Transmission Date: 20190711
  Serious: Yes (Hospitalization, Other)
  Sender: FDA-Public Use
  Company Number: US-THERAPEUTICSMD-2019TMD00511

PATIENT
  Age: 61 Year
  Sex: Female
  Weight: 62.59 kg

DRUGS (3)
  1. IMVEXXY [Suspect]
     Active Substance: ESTRADIOL
     Indication: VULVOVAGINAL DRYNESS
     Dosage: 10 ?G, 1X/DAYBEFORE BED
     Route: 067
     Dates: start: 201902, end: 201902
  2. PROGESTERONE. [Concomitant]
     Active Substance: PROGESTERONE
  3. EVAMIST [Suspect]
     Active Substance: ESTRADIOL
     Dosage: UNK

REACTIONS (7)
  - Pain [Unknown]
  - Blood potassium decreased [Recovered/Resolved]
  - Heart rate increased [Unknown]
  - Flushing [Unknown]
  - Nephrolithiasis [Not Recovered/Not Resolved]
  - Paraesthesia [Not Recovered/Not Resolved]
  - Hypertension [Recovering/Resolving]

NARRATIVE: CASE EVENT DATE: 2019
